FAERS Safety Report 19156407 (Version 3)
Quarter: 2024Q2

REPORT INFORMATION
  Report Type: Other
  Country: US (occurrence: US)
  Receive Date: 20210420
  Receipt Date: 20240514
  Transmission Date: 20240716
  Serious: No
  Sender: FDA-Public Use
  Company Number: US-TOLMAR, INC.-21US025827

PATIENT
  Sex: Male
  Weight: 78.01 kg

DRUGS (7)
  1. ELIGARD [Suspect]
     Active Substance: LEUPROLIDE ACETATE
     Indication: Lung neoplasm malignant
     Dosage: UNK
     Dates: start: 2020
  2. XTANDI [Suspect]
     Active Substance: ENZALUTAMIDE
     Indication: Salivary gland neoplasm
     Dosage: 160 MG, QD
     Route: 048
     Dates: start: 2020
  3. XTANDI [Suspect]
     Active Substance: ENZALUTAMIDE
     Indication: Lung neoplasm malignant
     Dosage: 160 MG, QD
     Route: 048
  4. XTANDI [Suspect]
     Active Substance: ENZALUTAMIDE
     Indication: Prostate cancer
  5. LUPRON [Suspect]
     Active Substance: LEUPROLIDE ACETATE
     Indication: Lung neoplasm malignant
     Dosage: UNK
  6. FLOMAX [Concomitant]
     Active Substance: TAMSULOSIN HYDROCHLORIDE
     Indication: Product used for unknown indication
     Dosage: UNK
  7. UNSPECIFIED INGREDIENT [Concomitant]
     Active Substance: UNSPECIFIED INGREDIENT
     Indication: Hypertension
     Dosage: UNK

REACTIONS (5)
  - Drug ineffective for unapproved indication [Unknown]
  - Gynaecomastia [Unknown]
  - Insomnia [Unknown]
  - Hot flush [Unknown]
  - Constipation [Unknown]
